FAERS Safety Report 20604920 (Version 1)
Quarter: 2022Q1

REPORT INFORMATION
  Report Type: Spontaneous
  Country: US (occurrence: US)
  Receive Date: 20220317
  Receipt Date: 20220317
  Transmission Date: 20220423
  Serious: No
  Sender: FDA-Public Use
  Company Number: US-UNITED THERAPEUTICS-UNT-2022-005770

PATIENT
  Sex: Female
  Weight: 69.977 kg

DRUGS (2)
  1. TYVASO [Suspect]
     Active Substance: TREPROSTINIL
     Indication: Pulmonary arterial hypertension
     Dosage: UNK
     Dates: start: 20200612
  2. TYVASO [Suspect]
     Active Substance: TREPROSTINIL
     Dosage: 18-54 ?G, QID

REACTIONS (7)
  - Epistaxis [Unknown]
  - Oral mucosal erythema [Unknown]
  - Pharyngeal erythema [Unknown]
  - Glossitis [Unknown]
  - Stomatitis [Unknown]
  - Dry mouth [Unknown]
  - Dysphagia [Unknown]
